FAERS Safety Report 4355771-X (Version None)
Quarter: 2004Q2

REPORT INFORMATION
  Report Type: 
  Country: None (occurrence: None)
  Receive Date: 20040505
  Receipt Date: 20040423
  Transmission Date: 20050107
  Serious: Yes (Hospitalization)
  Sender: FDA-Public Use
  Company Number: 430007M04USA

PATIENT
  Age: 48 Year
  Weight: 53 kg

DRUGS (3)
  1. NOVANTRONE [Suspect]
     Indication: MULTIPLE SCLEROSIS
     Dosage: 20 MG, INTRAVENOUS
     Route: 042
     Dates: start: 20010306, end: 20030520
  2. INTERFERON BETA [Concomitant]
  3. BACLOFEN [Concomitant]

REACTIONS (6)
  - APHASIA [None]
  - CEREBRAL INFARCTION [None]
  - CONGESTIVE CARDIOMYOPATHY [None]
  - EJECTION FRACTION DECREASED [None]
  - HEMIPARESIS [None]
  - VENTRICULAR HYPOKINESIA [None]
